FAERS Safety Report 15742508 (Version 2)
Quarter: 2019Q1

REPORT INFORMATION
  Report Type: Spontaneous
  Country: US (occurrence: US)
  Receive Date: 20181219
  Receipt Date: 20190312
  Transmission Date: 20190417
  Serious: Yes (Hospitalization, Other)
  Sender: FDA-Public Use
  Company Number: US-GILEAD-2018-0380919

PATIENT
  Age: 21 Year
  Sex: Male

DRUGS (23)
  1. KEPPRA [Concomitant]
     Active Substance: LEVETIRACETAM
  2. NORMAL SALINE [Concomitant]
     Active Substance: SODIUM CHLORIDE
  3. YESCARTA [Suspect]
     Active Substance: AXICABTAGENE CILOLEUCEL
     Indication: DIFFUSE LARGE B-CELL LYMPHOMA REFRACTORY
     Dosage: UNK ML, ONCE
     Route: 042
     Dates: start: 20180507, end: 20180507
  4. TYLENOL [Concomitant]
     Active Substance: ACETAMINOPHEN
  5. ZYLOPRIM [Concomitant]
     Active Substance: ALLOPURINOL
  6. POTASSIUM CHLORIDE. [Concomitant]
     Active Substance: POTASSIUM CHLORIDE
  7. KLOR-CON [Concomitant]
     Active Substance: POTASSIUM CHLORIDE
  8. VANCOMYCIN [Concomitant]
     Active Substance: VANCOMYCIN
  9. ZOFRAN [Concomitant]
     Active Substance: ONDANSETRON HYDROCHLORIDE
  10. ROXICODONE [Concomitant]
     Active Substance: OXYCODONE HYDROCHLORIDE
  11. SENNOKOTT [Concomitant]
  12. COMPAZINE [Concomitant]
     Active Substance: PROCHLORPERAZINE MALEATE
  13. CEFEPIME [Concomitant]
     Active Substance: CEFEPIME HYDROCHLORIDE
  14. DIFLUCAN [Concomitant]
     Active Substance: FLUCONAZOLE
  15. MIRALAX [Concomitant]
     Active Substance: POLYETHYLENE GLYCOL 3350
  16. LACTULOSE. [Concomitant]
     Active Substance: LACTULOSE
  17. MAGNESIUM SULFATE. [Concomitant]
     Active Substance: MAGNESIUM SULFATE
  18. ZARXIO [Concomitant]
     Active Substance: FILGRASTIM-SNDZ
  19. SIMETHICONE (DIMETHICONE) [Concomitant]
     Active Substance: DIMETHICONE
  20. MAGNESIUM CITRATE. [Concomitant]
     Active Substance: MAGNESIUM CITRATE
  21. VALTREX [Concomitant]
     Active Substance: VALACYCLOVIR HYDROCHLORIDE
  22. MYCAMINE [Concomitant]
     Active Substance: MICAFUNGIN SODIUM
  23. PRILOSEC [Concomitant]
     Active Substance: OMEPRAZOLE MAGNESIUM

REACTIONS (4)
  - CAR T-cell-related encephalopathy syndrome [Unknown]
  - Aphasia [Recovered/Resolved]
  - Confusional state [Recovered/Resolved]
  - Cytokine release syndrome [Recovered/Resolved]

NARRATIVE: CASE EVENT DATE: 20180510
